FAERS Safety Report 9229478 (Version 1)
Quarter: 2013Q2

REPORT INFORMATION
  Report Type: Spontaneous
  Country: US (occurrence: US)
  Receive Date: 20130412
  Receipt Date: 20130412
  Transmission Date: 20140414
  Serious: Yes (Death)
  Sender: FDA-Public Use
  Company Number: US-ABBOTT-11P-163-0887872-00

PATIENT
  Age: 45 Year
  Sex: Female

DRUGS (10)
  1. PROGESTERONE [Suspect]
     Indication: PRODUCT USED FOR UNKNOWN INDICATION
     Dosage: INGESTION
  2. PHENOBARBITAL [Suspect]
     Indication: PRODUCT USED FOR UNKNOWN INDICATION
     Dosage: INGESTION
  3. DIAZEPAM [Suspect]
     Indication: PRODUCT USED FOR UNKNOWN INDICATION
     Dosage: INGESTION
  4. TOPIRAMATE [Suspect]
     Indication: PRODUCT USED FOR UNKNOWN INDICATION
     Dosage: INGESTION
  5. GABAPENTIN [Suspect]
     Indication: PRODUCT USED FOR UNKNOWN INDICATION
     Dosage: INGESTION
  6. TEMAZEPAM [Suspect]
     Indication: PRODUCT USED FOR UNKNOWN INDICATION
     Dosage: INGESTION
  7. CLONAZEPAM [Suspect]
     Indication: PRODUCT USED FOR UNKNOWN INDICATION
     Dosage: INGESTION
  8. NAPROXEN [Suspect]
     Indication: PRODUCT USED FOR UNKNOWN INDICATION
     Dosage: INGESTION
  9. MONTELUKAST [Suspect]
     Indication: PRODUCT USED FOR UNKNOWN INDICATION
     Dosage: INGESTION
  10. SPIRONOLACTONE [Suspect]
     Indication: PRODUCT USED FOR UNKNOWN INDICATION
     Dosage: INGESTION

REACTIONS (1)
  - Completed suicide [Fatal]
